FAERS Safety Report 8160781-0 (Version None)
Quarter: 2012Q1

REPORT INFORMATION
  Report Type: 
  Country: None (occurrence: None)
  Receive Date: 20120223
  Receipt Date: 20120215
  Transmission Date: 20120608
  Serious: Yes (Hospitalization, Congenital Anomaly)
  Sender: FDA-Public Use
  Company Number: PHEH2011US05253

PATIENT
  Sex: Male

DRUGS (7)
  1. TOBI [Suspect]
     Indication: CYSTIC FIBROSIS
     Dosage: 300 MG, BID  28 DAYS ON AND 28 DAYS OFF
  2. ALBUTEROL [Concomitant]
  3. PANCRELIPASE [Concomitant]
  4. PULMOZYME [Concomitant]
  5. SALINE [Concomitant]
  6. CAYSTON [Concomitant]
  7. VITAMIN TAB [Concomitant]

REACTIONS (5)
  - FUNGAL INFECTION [None]
  - PULMONARY FUNCTION TEST DECREASED [None]
  - INFECTIVE PULMONARY EXACERBATION OF CYSTIC FIBROSIS [None]
  - INTESTINAL MALROTATION [None]
  - MALAISE [None]
